FAERS Safety Report 6304415-6 (Version None)
Quarter: 2009Q3

REPORT INFORMATION
  Report Type: 
  Country: None (occurrence: None)
  Receive Date: 20090811
  Receipt Date: 20090805
  Transmission Date: 20100115
  Serious: Yes (Hospitalization)
  Sender: FDA-Public Use
  Company Number: PHHY2009JP33342

PATIENT
  Age: 86 Year
  Sex: Male

DRUGS (8)
  1. VOLTAREN [Suspect]
     Dosage: 1 DF, QD
     Route: 054
  2. HALCION [Concomitant]
     Dosage: 0.5 MG, UNK
  3. EPADEL [Concomitant]
     Dosage: 1800 MG, UNK
  4. MANIDIPINE HYDROCHLORIDE [Concomitant]
     Dosage: 10 MG, UNK
  5. OXAZOLAM [Concomitant]
     Dosage: 30 MG, UNK
  6. NIZATIDINE [Concomitant]
     Dosage: 300 MG, UNK
  7. CASODEX [Concomitant]
     Dosage: 80 MG, UNK
  8. SENNOSIDE [Concomitant]

REACTIONS (3)
  - ANAEMIA [None]
  - DUODENAL NEOPLASM [None]
  - SMALL INTESTINE ULCER [None]
